FAERS Safety Report 9362158 (Version 4)
Quarter: 2014Q1

REPORT INFORMATION
  Report Type: Spontaneous
  Country: US (occurrence: US)
  Receive Date: 20130621
  Receipt Date: 20140306
  Transmission Date: 20141002
  Serious: Yes (Hospitalization, Other)
  Sender: FDA-Public Use
  Company Number: US-RB-054259-13

PATIENT
  Age: 70 Year
  Sex: Female

DRUGS (5)
  1. SUBOXONE FILM [Suspect]
     Indication: PAIN
     Route: 060
     Dates: start: 2011, end: 201305
  2. SUBOXONE FILM [Suspect]
     Dosage: SUBOXONE FILM
     Route: 060
     Dates: start: 20130516, end: 201402
  3. SUBOXONE FILM [Suspect]
     Dosage: SUBOXONE FILM
     Route: 060
     Dates: start: 201402
  4. BUTRANS PATCH [Suspect]
     Indication: BACK PAIN
     Route: 062
     Dates: start: 20130508
  5. GABAPENTIN [Concomitant]
     Indication: NEURALGIA
     Dosage: UNKNOWN DOSING DETAILS
     Route: 065

REACTIONS (14)
  - Off label use [Not Recovered/Not Resolved]
  - Pneumonia [Recovering/Resolving]
  - Drug ineffective [Recovered/Resolved]
  - Blood pressure fluctuation [Recovered/Resolved]
  - Vomiting [Recovered/Resolved]
  - Drug withdrawal syndrome [Recovered/Resolved]
  - Gastroenteritis [Recovered/Resolved]
  - Nausea [Unknown]
  - Feeling of body temperature change [Unknown]
  - Pyrexia [Unknown]
  - Dehydration [Unknown]
  - Chest pain [Unknown]
  - Wrong technique in drug usage process [Recovered/Resolved]
  - Drug ineffective for unapproved indication [Not Recovered/Not Resolved]
